FAERS Safety Report 7738188-7 (Version None)
Quarter: 2011Q3

REPORT INFORMATION
  Report Type: 
  Country: None (occurrence: None)
  Receive Date: 20110908
  Receipt Date: 20110829
  Transmission Date: 20111222
  Serious: Yes (Hospitalization)
  Sender: FDA-Public Use
  Company Number: FR-PFIZER INC-2011209660

PATIENT
  Age: 62 Year
  Sex: Male

DRUGS (5)
  1. PROPRANOLOL [Suspect]
     Dosage: 80 MG, 1X/DAY
     Route: 048
     Dates: end: 20110511
  2. PROPRANOLOL [Suspect]
     Dosage: 160 MG, 1X/DAY
     Route: 048
     Dates: start: 20110511, end: 20110517
  3. CEFTRIAXONE SODIUM [Suspect]
     Dosage: UNK
     Route: 042
     Dates: start: 20110510, end: 20110512
  4. PANTOPRAZOLE [Concomitant]
     Route: 048
  5. IODINE [Concomitant]
     Route: 042

REACTIONS (3)
  - PERSECUTORY DELUSION [None]
  - HALLUCINATION, VISUAL [None]
  - AGGRESSION [None]
